FAERS Safety Report 6838650-5 (Version None)
Quarter: 2010Q3

REPORT INFORMATION
  Report Type: 
  Country: None (occurrence: None)
  Receive Date: 20100713
  Receipt Date: 20070606
  Transmission Date: 20110219
  Serious: No
  Sender: FDA-Public Use
  Company Number: US-PFIZER INC-2007046767

PATIENT
  Sex: Female
  Weight: 55.454 kg

DRUGS (7)
  1. CHANTIX [Suspect]
     Indication: SMOKING CESSATION THERAPY
     Dates: start: 20070605
  2. VITAMIN E [Concomitant]
  3. HYDROCODONE BITARTRATE [Concomitant]
  4. BENADRYL [Concomitant]
  5. LOVASTATIN [Concomitant]
  6. CLONAZEPAM [Concomitant]
  7. DIET FORMULATIONS FOR TREATMENT OF OBESITY [Concomitant]

REACTIONS (2)
  - DYSGEUSIA [None]
  - FEELING ABNORMAL [None]
